FAERS Safety Report 6591465-8 (Version None)
Quarter: 2010Q1

REPORT INFORMATION
  Report Type: 
  Country: None (occurrence: None)
  Receive Date: 20100219
  Receipt Date: 20100209
  Transmission Date: 20100710
  Serious: Yes (Hospitalization, Other)
  Sender: FDA-Public Use
  Company Number: US-ELI_LILLY_AND_COMPANY-US201001002229

PATIENT
  Sex: Female

DRUGS (3)
  1. FORTEO [Suspect]
     Indication: MULTIPLE FRACTURES
     Dosage: 20 UG, DAILY (1/D)
     Route: 065
     Dates: start: 20060301, end: 20080301
  2. LEXAPRO [Concomitant]
     Dosage: UNK, UNKNOWN
     Route: 065
  3. CLARITIN [Concomitant]
     Dosage: UNK, UNKNOWN
     Route: 065

REACTIONS (2)
  - FALL [None]
  - FEMUR FRACTURE [None]
